FAERS Safety Report 4505050-2 (Version None)
Quarter: 2004Q4

REPORT INFORMATION
  Report Type: 
  Country: None (occurrence: None)
  Receive Date: 20041015
  Receipt Date: 20040730
  Transmission Date: 20050328
  Serious: Yes (Other)
  Sender: FDA-Public Use
  Company Number: 2004052225

PATIENT
  Age: 61 Year
  Sex: Male
  Weight: 90.7194 kg

DRUGS (4)
  1. NEURONTIN [Suspect]
     Indication: INTERVERTEBRAL DISC PROTRUSION
     Dosage: ORAL
     Route: 048
     Dates: start: 20040714
  2. VICODIN [Concomitant]
  3. DIOVAN HCT [Concomitant]
  4. MULTIVITAMIN [Concomitant]

REACTIONS (5)
  - BACK PAIN [None]
  - MEMORY IMPAIRMENT [None]
  - OVERWEIGHT [None]
  - REPETITIVE SPEECH [None]
  - VOMITING [None]
